FAERS Safety Report 4428353-9 (Version None)
Quarter: 2004Q3

REPORT INFORMATION
  Report Type: 
  Country: None (occurrence: None)
  Receive Date: 20040813
  Receipt Date: 20040804
  Transmission Date: 20050211
  Serious: Yes (Life-Threatening, Other)
  Sender: FDA-Public Use
  Company Number: 2004-08-0100

PATIENT
  Age: 45 Year
  Sex: Female
  Weight: 66 kg

DRUGS (2)
  1. REBETOL [Suspect]
     Indication: HEPATITIS C
     Dosage: BID ORAL
     Route: 048
     Dates: start: 20030927, end: 20040610
  2. PEGASYS [Suspect]
     Indication: HEPATITIS C
     Dosage: 180 UG QW SUBCUTANEOUS
     Route: 058
     Dates: start: 20030927, end: 20040611

REACTIONS (25)
  - BONE MARROW DEPRESSION [None]
  - CONFUSIONAL STATE [None]
  - COUGH [None]
  - DYSPHAGIA [None]
  - DYSPHONIA [None]
  - GENERAL PHYSICAL HEALTH DETERIORATION [None]
  - HAEMOGLOBIN DECREASED [None]
  - HEADACHE [None]
  - HEPATITIS GRANULOMATOUS [None]
  - LICHEN PLANUS [None]
  - LYMPHOPENIA [None]
  - MEMORY IMPAIRMENT [None]
  - MUSCULOSKELETAL STIFFNESS [None]
  - NIGHT SWEATS [None]
  - PALPITATIONS [None]
  - PYREXIA [None]
  - RASH [None]
  - SARCOIDOSIS [None]
  - SINUS TACHYCARDIA [None]
  - SLEEP DISORDER [None]
  - TOXIC SKIN ERUPTION [None]
  - TUBERCULIN TEST POSITIVE [None]
  - TUBERCULOSIS [None]
  - WEIGHT DECREASED [None]
  - WHITE BLOOD CELL COUNT DECREASED [None]
